FAERS Safety Report 21303427 (Version 5)
Quarter: 2022Q3

REPORT INFORMATION
  Report Type: Report from Study
  Country: US (occurrence: US)
  Receive Date: 20220907
  Receipt Date: 20220928
  Transmission Date: 20221026
  Serious: Yes (Other)
  Sender: FDA-Public Use
  Company Number: US-NOVARTISTESTPH-NVSC2022US201993

PATIENT
  Sex: Male

DRUGS (1)
  1. ENTRESTO [Suspect]
     Active Substance: SACUBITRIL\VALSARTAN
     Indication: Product used for unknown indication
     Dosage: 1 DOSAGE FORM, (24/26 MG)
     Route: 065

REACTIONS (5)
  - Atrial fibrillation [Unknown]
  - Weight increased [Unknown]
  - Blood sodium decreased [Unknown]
  - Dizziness [Unknown]
  - Blood potassium increased [Unknown]
